FAERS Safety Report 24990048 (Version 2)
Quarter: 2025Q2

REPORT INFORMATION
  Report Type: Spontaneous
  Country: FR (occurrence: FR)
  Receive Date: 20250220
  Receipt Date: 20250522
  Transmission Date: 20250717
  Serious: Yes (Other)
  Sender: REGENERON
  Company Number: FR-BAYER-2025A023768

PATIENT
  Sex: Female

DRUGS (1)
  1. EYLEA HD [Suspect]
     Active Substance: AFLIBERCEPT
     Indication: Neovascular age-related macular degeneration
     Route: 031
     Dates: start: 20250204

REACTIONS (3)
  - Blindness [Recovering/Resolving]
  - Eye pain [Recovering/Resolving]
  - Iridocyclitis [Recovering/Resolving]

NARRATIVE: CASE EVENT DATE: 20250206
